FAERS Safety Report 8589677-7 (Version None)
Quarter: 2012Q3

REPORT INFORMATION
  Report Type: 
  Country: None (occurrence: None)
  Receive Date: 20120813
  Receipt Date: 20120802
  Transmission Date: 20120928
  Serious: Yes (Hospitalization)
  Sender: FDA-Public Use
  Company Number: US-CELGENEUS-163-21660-12080463

PATIENT
  Sex: Female
  Weight: 64.9 kg

DRUGS (15)
  1. HERCEPTIN [Suspect]
     Dosage: 139 MILLIGRAM
     Route: 065
     Dates: start: 20120718
  2. DEXAMETHASONE [Concomitant]
     Dosage: 16 MILLIGRAM
     Route: 048
     Dates: start: 20120521
  3. GABAPENTIN [Concomitant]
     Dosage: 400 MILLIGRAM
     Route: 048
     Dates: start: 20120718
  4. ATIVAN [Concomitant]
     Indication: ANXIETY
     Dosage: 1 MILLIGRAM
     Route: 048
     Dates: start: 20120718
  5. ABRAXANE [Suspect]
     Dosage: 177 MILLIGRAM
     Route: 065
     Dates: start: 20120718, end: 20120725
  6. MOTRIN [Concomitant]
     Indication: PAIN
     Dosage: 600 MILLIGRAM
     Route: 048
  7. HERCEPTIN [Suspect]
     Indication: BREAST CANCER
     Dosage: 139 MILLIGRAM
     Route: 065
     Dates: start: 20120613
  8. ATIVAN [Concomitant]
     Indication: VOMITING
  9. ABRAXANE [Suspect]
     Dosage: 80 MICROGRAM/SQ. METER
     Route: 065
     Dates: start: 20120801
  10. CARBOPLATIN [Suspect]
     Indication: BREAST CANCER
     Dosage: 675 MILLIGRAM
     Route: 065
     Dates: start: 20120613
  11. CARBOPLATIN [Suspect]
     Dosage: 675 MILLIGRAM
     Route: 065
     Dates: start: 20120718
  12. VICODIN [Concomitant]
     Dosage: 5MG-500MG
     Route: 048
  13. ABRAXANE [Suspect]
     Indication: BREAST CANCER
     Dosage: 177 MILLIGRAM
     Route: 065
     Dates: start: 20120613
  14. ATIVAN [Concomitant]
     Indication: INSOMNIA
     Dosage: 3 MILLIGRAM
     Route: 048
     Dates: start: 20120725
  15. ATIVAN [Concomitant]
     Indication: NAUSEA

REACTIONS (14)
  - WHITE BLOOD CELL COUNT DECREASED [None]
  - HYPOKALAEMIA [None]
  - DIARRHOEA [None]
  - GASTROINTESTINAL HAEMORRHAGE [None]
  - DECREASED APPETITE [None]
  - NAUSEA [None]
  - BLOOD CREATININE INCREASED [None]
  - NEUTROPHIL COUNT DECREASED [None]
  - HYPONATRAEMIA [None]
  - ABDOMINAL PAIN [None]
  - HYPOCALCAEMIA [None]
  - DEHYDRATION [None]
  - HAEMOGLOBIN DECREASED [None]
  - VOMITING [None]
